FAERS Safety Report 14795001 (Version 4)
Quarter: 2019Q3

REPORT INFORMATION
  Report Type: Spontaneous
  Country: US (occurrence: US)
  Receive Date: 20180423
  Receipt Date: 20190926
  Transmission Date: 20191004
  Serious: Yes (Other)
  Sender: FDA-Public Use
  Company Number: US-ASTRAZENECA-2018SE47500

PATIENT
  Age: 20729 Day
  Sex: Female
  Weight: 74.8 kg

DRUGS (36)
  1. DEXILANT [Suspect]
     Active Substance: DEXLANSOPRAZOLE
     Indication: GASTROOESOPHAGEAL REFLUX DISEASE
     Route: 065
     Dates: start: 1996, end: 2016
  2. DEXILANT [Suspect]
     Active Substance: DEXLANSOPRAZOLE
     Indication: GASTROOESOPHAGEAL REFLUX DISEASE
     Route: 065
  3. PREVACID [Suspect]
     Active Substance: LANSOPRAZOLE
     Indication: GASTROOESOPHAGEAL REFLUX DISEASE
     Route: 065
     Dates: start: 1996, end: 2016
  4. PROTONIX [Suspect]
     Active Substance: PANTOPRAZOLE SODIUM
     Indication: GASTROOESOPHAGEAL REFLUX DISEASE
     Route: 065
     Dates: start: 201905
  5. NASONEX [Concomitant]
     Active Substance: MOMETASONE FUROATE
  6. TRAZODONE [Concomitant]
     Active Substance: TRAZODONE HYDROCHLORIDE
  7. METFORMIN [Concomitant]
     Active Substance: METFORMIN HYDROCHLORIDE
  8. PREVACID [Suspect]
     Active Substance: LANSOPRAZOLE
     Indication: GASTROOESOPHAGEAL REFLUX DISEASE
     Dosage: GENERIC
     Route: 065
  9. TOPAMAX [Concomitant]
     Active Substance: TOPIRAMATE
  10. LIPITOR [Concomitant]
     Active Substance: ATORVASTATIN CALCIUM
     Indication: BLOOD CHOLESTEROL INCREASED
     Dates: start: 20180129, end: 20180605
  11. REMERON [Concomitant]
     Active Substance: MIRTAZAPINE
  12. ISOSORBIDE. [Concomitant]
     Active Substance: ISOSORBIDE
     Indication: CARDIAC DISORDER
     Dates: start: 20180219, end: 20180502
  13. PREVACID [Suspect]
     Active Substance: LANSOPRAZOLE
     Indication: GASTROOESOPHAGEAL REFLUX DISEASE
     Route: 065
  14. ADVAIR DISKUS [Concomitant]
     Active Substance: FLUTICASONE PROPIONATE\SALMETEROL XINAFOATE
  15. GLUCOSAMINE [Concomitant]
     Active Substance: GLUCOSAMINE
  16. PROVENTIL [Concomitant]
     Active Substance: ALBUTEROL
  17. PROTONIX [Suspect]
     Active Substance: PANTOPRAZOLE SODIUM
     Indication: GASTROOESOPHAGEAL REFLUX DISEASE
     Route: 065
  18. KLOR-CON [Concomitant]
     Active Substance: POTASSIUM CHLORIDE
  19. CARISOPRODOL. [Concomitant]
     Active Substance: CARISOPRODOL
  20. LEVOTHYROXINE. [Concomitant]
     Active Substance: LEVOTHYROXINE
     Indication: THYROID DISORDER
     Dates: start: 20180108, end: 20180502
  21. PRILOSEC [Suspect]
     Active Substance: OMEPRAZOLE MAGNESIUM
     Indication: GASTROOESOPHAGEAL REFLUX DISEASE
     Route: 048
  22. BACLOFEN. [Concomitant]
     Active Substance: BACLOFEN
  23. LEVOCETIRIZINE [Concomitant]
     Active Substance: LEVOCETIRIZINE
     Indication: PYREXIA
     Dates: start: 20180108, end: 20180212
  24. PRILOSEC [Suspect]
     Active Substance: OMEPRAZOLE MAGNESIUM
     Indication: GASTROOESOPHAGEAL REFLUX DISEASE
     Dosage: GENERIC
     Route: 065
  25. PEPCID [Suspect]
     Active Substance: FAMOTIDINE
     Route: 065
  26. PREVACID 24 HR [Suspect]
     Active Substance: LANSOPRAZOLE
     Route: 065
     Dates: start: 1996, end: 2016
  27. SINGULAIR [Concomitant]
     Active Substance: MONTELUKAST SODIUM
  28. PROAIR HFA [Concomitant]
     Active Substance: ALBUTEROL SULFATE
  29. CALCIUM [Concomitant]
     Active Substance: CALCIUM
  30. LASIX [Concomitant]
     Active Substance: FUROSEMIDE
  31. ATORVASTATIN [Concomitant]
     Active Substance: ATORVASTATIN
     Indication: PYREXIA
     Dates: start: 20180129, end: 20180605
  32. NEXIUM [Suspect]
     Active Substance: ESOMEPRAZOLE MAGNESIUM
     Indication: GASTROOESOPHAGEAL REFLUX DISEASE
     Route: 048
  33. NEXIUM 24HR [Suspect]
     Active Substance: ESOMEPRAZOLE MAGNESIUM
     Route: 048
     Dates: start: 1996, end: 2016
  34. METOCLOPRAMIDE. [Concomitant]
     Active Substance: METOCLOPRAMIDE
  35. NEXIUM [Suspect]
     Active Substance: ESOMEPRAZOLE MAGNESIUM
     Indication: GASTROOESOPHAGEAL REFLUX DISEASE
     Route: 048
     Dates: start: 1996, end: 2016
  36. MAGNESIUM [Concomitant]
     Active Substance: MAGNESIUM

REACTIONS (2)
  - Chronic kidney disease [Unknown]
  - Renal failure [Not Recovered/Not Resolved]

NARRATIVE: CASE EVENT DATE: 20160630
